FAERS Safety Report 17375217 (Version 1)
Quarter: 2020Q1

REPORT INFORMATION
  Report Type: Spontaneous
  Country: US (occurrence: US)
  Receive Date: 20200121
  Receipt Date: 20200121
  Transmission Date: 20200409
  Serious: No
  Sender: FDA-Public Use
  Company Number: None

PATIENT
  Age: 41 Year
  Sex: Male

DRUGS (1)
  1. ESCITALOPRAM (ESCITALOPRAM OXALATE 10MG TAB) [Suspect]
     Active Substance: ESCITALOPRAM OXALATE
     Indication: DEPRESSION
     Dates: start: 20191001, end: 20191009

REACTIONS (2)
  - Myalgia [None]
  - Bruxism [None]

NARRATIVE: CASE EVENT DATE: 20191009
